FAERS Safety Report 7809792-2 (Version None)
Quarter: 2011Q4

REPORT INFORMATION
  Report Type: 
  Country: None (occurrence: None)
  Receive Date: 20111012
  Receipt Date: 20111004
  Transmission Date: 20120403
  Serious: Yes (Other)
  Sender: FDA-Public Use
  Company Number: PHHY2011BR88997

PATIENT
  Sex: Male

DRUGS (2)
  1. PHENOBARBITAL TAB [Concomitant]
     Indication: CONVULSION
     Dosage: 2 DF,DAILY
     Dates: start: 20080101
  2. OXCARBAZEPINE [Suspect]
     Indication: CONVULSION
     Dosage: 2 DF, DAILY
     Route: 048
     Dates: start: 20100101, end: 20110101

REACTIONS (2)
  - HERNIA [None]
  - GROIN PAIN [None]
